FAERS Safety Report 7458158-6 (Version None)
Quarter: 2011Q2

REPORT INFORMATION
  Report Type: 
  Country: None (occurrence: None)
  Receive Date: 20110504
  Receipt Date: 20110421
  Transmission Date: 20111010
  Serious: No
  Sender: FDA-Public Use
  Company Number: US-B.I. PHARMACEUTICALS,INC./RIDGEFIELD-2011-BP-07582BP

PATIENT
  Age: 78 Year
  Sex: Female

DRUGS (5)
  1. PRADAXA [Suspect]
     Indication: CEREBROVASCULAR ACCIDENT PROPHYLAXIS
     Dosage: 150 MG
     Route: 048
     Dates: start: 20110303, end: 20110308
  2. SYNTHROID [Concomitant]
  3. PRADAXA [Suspect]
     Indication: ANTICOAGULANT THERAPY
  4. AMIODARONE HCL [Concomitant]
     Dates: start: 20110222
  5. PRADAXA [Suspect]
     Indication: ATRIAL FIBRILLATION
     Dosage: 300 MG
     Route: 048
     Dates: start: 20110225, end: 20110302

REACTIONS (6)
  - DIZZINESS [None]
  - NAUSEA [None]
  - THERAPEUTIC RESPONSE DELAYED [None]
  - MALAISE [None]
  - GAIT DISTURBANCE [None]
  - HEART RATE INCREASED [None]
